FAERS Safety Report 10169063 (Version 1)
Quarter: 2014Q2

REPORT INFORMATION
  Report Type: Spontaneous
  Country: US (occurrence: None)
  Receive Date: 20140509
  Receipt Date: 20140509
  Transmission Date: 20141212
  Serious: Yes (Other)
  Sender: FDA-Public Use
  Company Number: UTC-047629

PATIENT
  Age: 55 Year
  Sex: Female
  Weight: 67.99 kg

DRUGS (2)
  1. REMODULIN [Suspect]
     Indication: PULMONARY ARTERIAL HYPERTENSION
     Dosage: 0.002 UG/KG/MIN(0.002 UG/KG 1 IN 1 MIN) SUBCUTANEOUS
     Route: 058
     Dates: start: 20140402
  2. REVATIO [Concomitant]

REACTIONS (6)
  - Oxygen saturation decreased [None]
  - Hypotension [None]
  - Dizziness [None]
  - Feeling abnormal [None]
  - Dyspnoea [None]
  - Palpitations [None]
